FAERS Safety Report 7956537-1 (Version None)
Quarter: 2011Q4

REPORT INFORMATION
  Report Type: 
  Country: None (occurrence: None)
  Receive Date: 20111205
  Receipt Date: 20111124
  Transmission Date: 20120403
  Serious: Yes (Hospitalization, Other)
  Sender: FDA-Public Use
  Company Number: CH-JNJFOC-20111110515

PATIENT
  Age: 72 Year
  Sex: Male
  Weight: 61.3 kg

DRUGS (10)
  1. OXAZEPAM [Suspect]
     Indication: PRODUCT USED FOR UNKNOWN INDICATION
     Route: 048
     Dates: start: 20110923, end: 20110923
  2. OXAZEPAM [Suspect]
     Route: 048
     Dates: start: 20110927, end: 20110928
  3. OXAZEPAM [Suspect]
     Route: 048
     Dates: start: 20110924, end: 20110924
  4. HALDOL [Suspect]
     Indication: PRODUCT USED FOR UNKNOWN INDICATION
     Route: 058
     Dates: end: 20110929
  5. SEROQUEL [Suspect]
     Indication: PRODUCT USED FOR UNKNOWN INDICATION
     Route: 048
  6. OXAZEPAM [Suspect]
     Route: 048
     Dates: start: 20110928, end: 20110928
  7. OXAZEPAM [Suspect]
     Route: 048
     Dates: start: 20110925, end: 20110925
  8. NORVASC [Concomitant]
  9. LORAZEPAM [Suspect]
     Indication: PRODUCT USED FOR UNKNOWN INDICATION
     Route: 060
     Dates: start: 20110929, end: 20110929
  10. LISINOPRIL [Concomitant]
     Route: 065

REACTIONS (8)
  - DYSPNOEA [None]
  - INCORRECT ROUTE OF DRUG ADMINISTRATION [None]
  - LOSS OF CONSCIOUSNESS [None]
  - BLOOD CREATININE INCREASED [None]
  - MUSCULOSKELETAL STIFFNESS [None]
  - MUSCLE RIGIDITY [None]
  - AGITATION [None]
  - TONGUE BITING [None]
